FAERS Safety Report 5952469-9 (Version None)
Quarter: 2008Q4

REPORT INFORMATION
  Report Type: 
  Country: None (occurrence: None)
  Receive Date: 20081113
  Receipt Date: 20081104
  Transmission Date: 20090506
  Serious: Yes (Other)
  Sender: FDA-Public Use
  Company Number: US-PFIZER INC-2008077002

PATIENT
  Sex: Female
  Weight: 57.6 kg

DRUGS (13)
  1. LIPITOR [Suspect]
     Indication: BLOOD CHOLESTEROL
     Dates: start: 20080822
  2. LIPITOR [Suspect]
     Indication: HYPERLIPIDAEMIA
  3. LIPITOR [Suspect]
     Indication: CORONARY ARTERY DISEASE
  4. ASPIRIN [Concomitant]
     Route: 048
  5. FOLTX [Concomitant]
     Route: 048
  6. NITRO-DUR [Concomitant]
     Route: 062
  7. NITROGLYCERIN [Concomitant]
     Route: 060
  8. FLORINEF [Concomitant]
  9. HYDROCORTISONE [Concomitant]
  10. NORVASC [Concomitant]
  11. METOPROLOL TARTRATE [Concomitant]
  12. ALL OTHER THERAPEUTIC PRODUCTS [Concomitant]
  13. PLAVIX [Concomitant]

REACTIONS (8)
  - CORONARY ARTERY STENOSIS [None]
  - DIARRHOEA [None]
  - DIZZINESS [None]
  - ERUCTATION [None]
  - FATIGUE [None]
  - HYPOPHAGIA [None]
  - INSOMNIA [None]
  - STENT PLACEMENT [None]
